APPROVED DRUG PRODUCT: LISINOPRIL
Active Ingredient: LISINOPRIL
Strength: 30MG
Dosage Form/Route: TABLET;ORAL
Application: A075783 | Product #005
Applicant: TEVA PHARMACEUTICALS USA INC
Approved: Jul 1, 2002 | RLD: No | RS: No | Type: DISCN